FAERS Safety Report 14480975 (Version 1)
Quarter: 2018Q1

REPORT INFORMATION
  Report Type: Spontaneous
  Country: US (occurrence: US)
  Receive Date: 20180201
  Receipt Date: 20180201
  Transmission Date: 20180509
  Serious: Yes (Hospitalization)
  Sender: FDA-Public Use
  Company Number: None

PATIENT
  Sex: Female
  Weight: 90 kg

DRUGS (5)
  1. NIVOLUMAB [Suspect]
     Active Substance: NIVOLUMAB
     Indication: MALIGNANT MELANOMA STAGE III
     Dates: start: 20171201, end: 20180119
  2. DIFLUCAN [Concomitant]
     Active Substance: FLUCONAZOLE
  3. PROPANOLOL [Concomitant]
     Active Substance: PROPRANOLOL HYDROCHLORIDE
  4. NYSTATIN. [Concomitant]
     Active Substance: NYSTATIN
  5. TUMARIC [Concomitant]

REACTIONS (4)
  - Thirst [None]
  - Pollakiuria [None]
  - Fatigue [None]
  - Latent autoimmune diabetes in adults [None]

NARRATIVE: CASE EVENT DATE: 20180126
